FAERS Safety Report 13485852 (Version 1)
Quarter: 2017Q2

REPORT INFORMATION
  Report Type: Spontaneous
  Country: US (occurrence: US)
  Receive Date: 20170426
  Receipt Date: 20170426
  Transmission Date: 20170830
  Serious: Yes (Other)
  Sender: FDA-Public Use
  Company Number: US-PFIZER INC-2017179076

PATIENT
  Age: 77 Year
  Sex: Female

DRUGS (2)
  1. LYRICA [Suspect]
     Active Substance: PREGABALIN
     Indication: DIABETIC NEUROPATHY
     Dosage: 200 MG, 3X/DAY
  2. LYRICA [Suspect]
     Active Substance: PREGABALIN
     Indication: NERVE COMPRESSION
     Dosage: 50 MG, 3X/DAY

REACTIONS (10)
  - Cerebrovascular accident [Unknown]
  - Renal cyst [Unknown]
  - Renal haemorrhage [Unknown]
  - Somnolence [Unknown]
  - Pain [Unknown]
  - Swelling [Unknown]
  - Hypoacusis [Unknown]
  - Overdose [Unknown]
  - Nephrolithiasis [Unknown]
  - Weight decreased [Unknown]
